FAERS Safety Report 6440350-0 (Version None)
Quarter: 2009Q4

REPORT INFORMATION
  Report Type: 
  Country: None (occurrence: None)
  Receive Date: 20091113
  Receipt Date: 20091103
  Transmission Date: 20100525
  Serious: Yes (Hospitalization, Other)
  Sender: FDA-Public Use
  Company Number: PHHY2009IT40068

PATIENT
  Sex: Male

DRUGS (3)
  1. TEGRETOL [Suspect]
     Indication: EPILEPSY
     Dosage: 400 MG, BID
  2. TEGRETOL [Suspect]
     Dosage: 800 MG/DAY
     Route: 048
     Dates: end: 20090825
  3. TEGRETOL [Suspect]
     Dosage: 1600 MG DAILY
     Dates: start: 20090826, end: 20090828

REACTIONS (3)
  - ANTICONVULSANT DRUG LEVEL INCREASED [None]
  - INCORRECT DOSE ADMINISTERED [None]
  - VERTIGO [None]
